FAERS Safety Report 8580312 (Version 2)
Quarter: 2013Q2

REPORT INFORMATION
  Report Type: Spontaneous
  Country: US (occurrence: US)
  Receive Date: 20120525
  Receipt Date: 20130503
  Transmission Date: 20140414
  Serious: No
  Sender: FDA-Public Use
  Company Number: US-PFIZER INC-2012121730

PATIENT
  Age: 59 Year
  Sex: Female

DRUGS (4)
  1. BENZYLPENICILLIN POTASSIUM [Suspect]
     Dosage: UNK
  2. FLAGYL [Suspect]
     Dosage: UNK
  3. ASACOL [Suspect]
     Dosage: UNK
  4. STADOL [Suspect]
     Dosage: UNK

REACTIONS (1)
  - Drug hypersensitivity [Unknown]
